FAERS Safety Report 25125761 (Version 7)
Quarter: 2025Q4

REPORT INFORMATION
  Report Type: Spontaneous
  Country: EU (occurrence: EU)
  Receive Date: 20250326
  Receipt Date: 20251224
  Transmission Date: 20260118
  Serious: Yes (Hospitalization, Disabling, Other)
  Sender: ORGANON
  Company Number: None

PATIENT
  Age: 60 Year
  Sex: Female
  Weight: 59 kg

DRUGS (317)
  1. MIRTAZAPINE [Suspect]
     Active Substance: MIRTAZAPINE
     Indication: Product used for unknown indication
     Dosage: (FILM-COATED TABLET)
     Route: 065
  2. MIRTAZAPINE [Suspect]
     Active Substance: MIRTAZAPINE
     Indication: Product used for unknown indication
     Dosage: ARROW GENERIQUES 15 MG FI/30, (2 TABLETS IN THE EVENING FOR 3 MONTHS)
     Route: 061
  3. MIRTAZAPINE [Suspect]
     Active Substance: MIRTAZAPINE
     Dosage: 15 MILLIGRAM
     Route: 061
  4. SMECTA [Suspect]
     Active Substance: MONTMORILLONITE
     Indication: Product used for unknown indication
     Dosage: (SMECTA 3 G POWDER FOR ORAL SUSP, IN ORANGE VANILLA SACHET) 3 SACHETS A DAY FOR 10 DAYS
     Route: 065
  5. PROGESTERONE [Suspect]
     Active Substance: PROGESTERONE
     Indication: Product used for unknown indication
     Dosage: 1 DOSE OF GEL PER DAY ON THE BREASTS RP 6 MONTHS
     Route: 065
  6. PROGESTERONE [Suspect]
     Active Substance: PROGESTERONE
     Dosage: 1 DOSE OF GEL PER DAY ON THE BREASTS RP 6 MONTHS
     Route: 065
  7. PROGESTERONE [Suspect]
     Active Substance: PROGESTERONE
     Dosage: 1 DOSE OF GEL PER DAY ON THE BREASTS RP 6 MONTHS
     Route: 065
  8. PROGESTERONE [Suspect]
     Active Substance: PROGESTERONE
     Dosage: 1 DOSE OF GEL PER DAY ON THE BREASTS RP 6 MONTHS
     Route: 065
  9. ACETAMINOPHEN [Suspect]
     Active Substance: ACETAMINOPHEN
     Indication: Product used for unknown indication
     Dosage: 1 G
     Route: 065
  10. ACETAMINOPHEN [Suspect]
     Active Substance: ACETAMINOPHEN
     Dosage: 1 G
     Route: 065
  11. ACETAMINOPHEN [Suspect]
     Active Substance: ACETAMINOPHEN
     Dosage: 1 G
     Route: 065
  12. ACETAMINOPHEN [Suspect]
     Active Substance: ACETAMINOPHEN
     Dosage: 1 G
     Route: 065
  13. PREGABALIN [Suspect]
     Active Substance: PREGABALIN
     Indication: Product used for unknown indication
     Dosage: PREGABAL MYL 100 MG  GEL PLQ/84
     Route: 061
  14. METEOSPASMYL (ALVERINE CITRATE\DIMETHICONE) [Suspect]
     Active Substance: ALVERINE CITRATE\DIMETHICONE
     Indication: Product used for unknown indication
     Dosage: 300 MG 3 CAPSULES A DAY FOR 10 DAYS
     Route: 065
  15. METEOSPASMYL (ALVERINE CITRATE\DIMETHICONE) [Suspect]
     Active Substance: ALVERINE CITRATE\DIMETHICONE
     Dosage: B/20
     Route: 065
  16. LOCOID [Suspect]
     Active Substance: HYDROCORTISONE BUTYRATE
     Indication: Product used for unknown indication
     Dosage: 0.1 % GREME (LOCOID CF THICK T/30G)
     Route: 065
  17. LOCOID [Suspect]
     Active Substance: HYDROCORTISONE BUTYRATE
     Dosage: 0.1 % GREME (LOCOID CF THICK T/30G)
     Route: 065
  18. LOCOID [Suspect]
     Active Substance: HYDROCORTISONE BUTYRATE
     Dosage: 0.1 % GREME (LOCOID CF THICK T/30G)
     Route: 065
  19. LOCOID [Suspect]
     Active Substance: HYDROCORTISONE BUTYRATE
     Dosage: 0.1 % GREME (LOCOID CF THICK T/30G)
     Route: 065
  20. LOCOID [Suspect]
     Active Substance: HYDROCORTISONE BUTYRATE
     Dosage: 0.1 % GREME (LOCOID CF THICK T/30G)
     Route: 065
  21. CETIRIZINE HYDROCHLORIDE [Suspect]
     Active Substance: CETIRIZINE HYDROCHLORIDE
     Indication: Product used for unknown indication
     Dosage: 10 MG
     Route: 065
  22. CETIRIZINE HYDROCHLORIDE [Suspect]
     Active Substance: CETIRIZINE HYDROCHLORIDE
     Dosage: 10 MG
     Route: 065
  23. CETIRIZINE HYDROCHLORIDE [Suspect]
     Active Substance: CETIRIZINE HYDROCHLORIDE
     Dosage: 10 MG
     Route: 065
  24. CETIRIZINE HYDROCHLORIDE [Suspect]
     Active Substance: CETIRIZINE HYDROCHLORIDE
     Dosage: 10 MG
     Route: 065
  25. CHLORMADINONE [Suspect]
     Active Substance: CHLORMADINONE
     Indication: Product used for unknown indication
     Dosage: 10 MG
     Route: 065
  26. CHLORMADINONE [Suspect]
     Active Substance: CHLORMADINONE
     Indication: Ovarian cyst
     Dosage: 10 MG
     Route: 065
  27. CHLORMADINONE [Suspect]
     Active Substance: CHLORMADINONE
     Dosage: 10 MG
     Route: 065
  28. CHLORMADINONE [Suspect]
     Active Substance: CHLORMADINONE
     Dosage: MERCK, ONE TABLET PER DAY DURING 21 DAYS AND 7 DAYS OFF BY MOTHS
     Dates: start: 2010
  29. BROMAZEPAM [Suspect]
     Active Substance: BROMAZEPAM
     Indication: Product used for unknown indication
     Dosage: 6 MG (6 MG TABS DOUBLE-SCORED 1 TBLT/30) 1/4 TABLET MORNING, NOON AND EVENING, FOR 3 MONTHS.
     Route: 061
  30. BROMAZEPAM [Suspect]
     Active Substance: BROMAZEPAM
     Dosage: 6 MG (6 MG TABS DOUBLE-SCORED 1 TBLT/30) 1/4 TABLET MORNING, NOON AND EVENING, FOR 3 MONTHS.
     Route: 061
  31. BROMAZEPAM [Suspect]
     Active Substance: BROMAZEPAM
     Dosage: 0.25 DF, TID
     Route: 061
  32. BROMAZEPAM [Suspect]
     Active Substance: BROMAZEPAM
     Indication: Product used for unknown indication
     Dosage: 0.25 DF, TID
     Route: 061
  33. BROMAZEPAM [Suspect]
     Active Substance: BROMAZEPAM
     Dosage: 6 MG
  34. CETIRIZINE HYDROCHLORIDE [Suspect]
     Active Substance: CETIRIZINE HYDROCHLORIDE
     Dosage: 1 DF, QD/ONCE IN THE EVENING
  35. CETIRIZINE HYDROCHLORIDE [Suspect]
     Active Substance: CETIRIZINE HYDROCHLORIDE
     Dosage: 10 MG(MERCK)REIMBURSED TABS WEIGHED B/15
     Route: 065
  36. CETIRIZINE HYDROCHLORIDE [Suspect]
     Active Substance: CETIRIZINE HYDROCHLORIDE
     Dosage: 1 DF, QD/ONCE IN THE EVENING
  37. DAFALGAN [Suspect]
     Active Substance: ACETAMINOPHEN
     Indication: Product used for unknown indication
     Dosage: 4 DF, QD
     Route: 061
  38. DAFALGAN [Suspect]
     Active Substance: ACETAMINOPHEN
     Dosage: 1 G TLB/8 (4 TABLETS A DAY FOR ONE MONTH, IF NECESSARY)
     Route: 061
  39. DAFALGAN [Suspect]
     Active Substance: ACETAMINOPHEN
     Dosage: 1 G TLB/8 (4 TABLETS A DAY FOR ONE MONTH,  IF NECESSARY)
     Route: 061
  40. DAFALGAN [Suspect]
     Active Substance: ACETAMINOPHEN
     Dosage: 1 G TLB/8 (4 TABLETS A DAY FOR ONE MONTH,  IF NECESSARY)
     Route: 061
  41. DAFALGAN [Suspect]
     Active Substance: ACETAMINOPHEN
     Dosage: 4 DF, QD
     Route: 061
  42. GLYCERIN\MINERAL OIL\PETROLATUM [Suspect]
     Active Substance: GLYCERIN\MINERAL OIL\PETROLATUM
     Indication: Product used for unknown indication
     Dosage: GLYCEROL 15% + LIQUID PARAFFIN 2% + VASELINE 8% CREAM (DEXERYL CR T/250 ML)
  43. GLYCERIN\MINERAL OIL\PETROLATUM [Suspect]
     Active Substance: GLYCERIN\MINERAL OIL\PETROLATUM
     Dosage: GLYCEROL 15% + LIQUID PARAFFIN 2% + VASELINE 8% CREAM (DEXERYL CR T/250 ML)
  44. IBUPROFEN [Suspect]
     Active Substance: IBUPROFEN
     Indication: Product used for unknown indication
     Dosage: MAKE 3 APPLICATIONS PER DAY
  45. IBUPROFEN [Suspect]
     Active Substance: IBUPROFEN
     Dosage: 5 %, TID (IBUFETUM 5% GEL T/60G) (APPLY 3 TIMES A DAY, FOR 1 MONTH)
  46. IBUPROFEN [Suspect]
     Active Substance: IBUPROFEN
     Dosage: 5 %, TID (IBUFETUM 5% GEL T/60G) (APPLY 3 TIMES A DAY, FOR 1 MONTH)
  47. IBUPROFEN [Suspect]
     Active Substance: IBUPROFEN
     Dosage: 5 %, TID (IBUFETUM 5% GEL T/60G) (APPLY 3 TIMES A DAY, FOR 1 MONTH)
  48. IBUPROFEN [Suspect]
     Active Substance: IBUPROFEN
     Dosage: 5 %, TID (IBUFETUM 5% GEL T/60G) (APPLY 3 TIMES A DAY, FOR 1 MONTH)
  49. IBUPROFEN [Suspect]
     Active Substance: IBUPROFEN
     Dosage: MAKE 3 APPLICATIONS PER DAY
  50. NOMEGESTROL ACETATE [Suspect]
     Active Substance: NOMEGESTROL ACETATE
     Indication: Ovarian cyst
     Dosage: 1 DF, QD
     Route: 065
     Dates: start: 20100621
  51. NOMEGESTROL ACETATE [Suspect]
     Active Substance: NOMEGESTROL ACETATE
     Indication: Menstruation irregular
     Dosage: 1 DF, QD
     Dates: start: 20150403
  52. NOMEGESTROL ACETATE [Suspect]
     Active Substance: NOMEGESTROL ACETATE
     Indication: Product used for unknown indication
     Dosage: 1 DF, QD
     Dates: start: 20170921
  53. NOMEGESTROL ACETATE [Suspect]
     Active Substance: NOMEGESTROL ACETATE
     Dosage: 1 DF, QD
     Route: 065
     Dates: start: 20140505
  54. NOMEGESTROL ACETATE [Suspect]
     Active Substance: NOMEGESTROL ACETATE
     Dosage: 1 DF, QD
     Dates: start: 20181106, end: 20190117
  55. NOMEGESTROL ACETATE [Suspect]
     Active Substance: NOMEGESTROL ACETATE
     Dosage: 1 DF, QD
     Route: 065
     Dates: start: 20170613
  56. NOMEGESTROL ACETATE [Suspect]
     Active Substance: NOMEGESTROL ACETATE
     Dosage: 1 DF, QD
     Route: 065
     Dates: start: 20180329
  57. NOMEGESTROL ACETATE [Suspect]
     Active Substance: NOMEGESTROL ACETATE
     Dosage: 1 DF, QD
     Dates: start: 20130517
  58. NOMEGESTROL ACETATE [Suspect]
     Active Substance: NOMEGESTROL ACETATE
     Dosage: 1 DF, QD
     Route: 065
     Dates: start: 20170307
  59. NOMEGESTROL ACETATE [Suspect]
     Active Substance: NOMEGESTROL ACETATE
     Dosage: 1 DF, QD
     Route: 061
     Dates: start: 20171211
  60. NOMEGESTROL ACETATE [Suspect]
     Active Substance: NOMEGESTROL ACETATE
     Dosage: 1 DF, QD
     Route: 065
     Dates: start: 20120514
  61. NOMEGESTROL ACETATE [Suspect]
     Active Substance: NOMEGESTROL ACETATE
     Dosage: 5 MG
     Route: 065
     Dates: start: 20170918
  62. NOMEGESTROL ACETATE [Suspect]
     Active Substance: NOMEGESTROL ACETATE
     Dosage: UNK, QD( FOR 21 DAYS, STOP FOR 7 DAYS, THEN RESUME.)
  63. NOMEGESTROL ACETATE [Suspect]
     Active Substance: NOMEGESTROL ACETATE
     Dosage: 5 MG, QD 1 TABLET IN THE EVENING FOR 3 MONTHS
     Dates: start: 20170918
  64. NOMEGESTROL ACETATE [Suspect]
     Active Substance: NOMEGESTROL ACETATE
     Dosage: UNK, QD( FOR 21 DAYS, STOP FOR 7 DAYS, THEN RESUME.)
     Route: 065
  65. NOMEGESTROL ACETATE [Suspect]
     Active Substance: NOMEGESTROL ACETATE
     Dosage: 5 MG, QD 1 TABLET IN THE EVENING FOR 3 MONTHS
     Route: 061
  66. NOMEGESTROL ACETATE [Suspect]
     Active Substance: NOMEGESTROL ACETATE
     Dosage: LUTENYL 5, 1 TABLET PER DAY CONTINUOUSLY
     Dates: start: 20120514
  67. NOMEGESTROL ACETATE [Suspect]
     Active Substance: NOMEGESTROL ACETATE
     Dosage: UNK, QD( FOR 21 DAYS, STOP FOR 7 DAYS, THEN RESUME.)
     Route: 065
  68. NOMEGESTROL ACETATE [Suspect]
     Active Substance: NOMEGESTROL ACETATE
     Dosage: 5 MG, QD 1 TABLET IN THE EVENING FOR 3 MONTHS
     Route: 061
  69. CHLORMADINONE ACETATE [Suspect]
     Active Substance: CHLORMADINONE ACETATE
     Indication: Menstruation irregular
     Dosage: ONE TABLET PER DAY DURING 21 DAYS AND 7 DAYS OFF BY MONTHS
     Route: 065
  70. CHLORMADINONE ACETATE [Suspect]
     Active Substance: CHLORMADINONE ACETATE
     Indication: Product used for unknown indication
     Dosage: 10 MG
     Route: 065
  71. CHLORMADINONE ACETATE [Suspect]
     Active Substance: CHLORMADINONE ACETATE
     Indication: Ovarian cyst
     Dosage: 10 MG
     Route: 065
  72. CHLORMADINONE ACETATE [Suspect]
     Active Substance: CHLORMADINONE ACETATE
     Indication: Menstruation irregular
     Dosage: 10 MG
     Route: 065
  73. CHLORMADINONE ACETATE [Suspect]
     Active Substance: CHLORMADINONE ACETATE
     Indication: Haemorrhage
     Dosage: 10 MG
     Route: 065
  74. CHLORMADINONE ACETATE [Suspect]
     Active Substance: CHLORMADINONE ACETATE
     Indication: Pain
     Dosage: PER DAY 21 DAYS OFF 7 DAYS RP 6 MONTHS
     Route: 065
  75. CHLORMADINONE ACETATE [Suspect]
     Active Substance: CHLORMADINONE ACETATE
     Dosage: 1 CP PER DAY 21 DAYS STOP 7 DAYS OAR 6 MONTHS,  1 DF , QD FOR 21 DAYS/ONE TABLET PER DAY DURING 21 DAYS AND 7 DAYS OFF BY MONTHS
     Route: 065
     Dates: start: 20100317, end: 20100621
  76. CHLORMADINONE ACETATE [Suspect]
     Active Substance: CHLORMADINONE ACETATE
     Dosage: 1 TABLET PER DAY AT A FIXED TIME WITHOUT INTERRUPTION
     Dates: start: 20190117
  77. CHLORMADINONE ACETATE [Suspect]
     Active Substance: CHLORMADINONE ACETATE
     Dosage: 1 TABLET PER DAY AT A FIXED TIME WITHOUT INTERRUPTION
     Dates: start: 20190715
  78. CHLORMADINONE ACETATE [Suspect]
     Active Substance: CHLORMADINONE ACETATE
     Dosage: 1 TABLET PER DAY AT A FIXED TIME WITHOUT INTERRUPTION
     Dates: start: 20190806
  79. CHLORMADINONE ACETATE [Suspect]
     Active Substance: CHLORMADINONE ACETATE
     Dosage: PER DAY 21 DAYS OFF 7 DAYS RP 6 MONTHS
  80. CHLORMADINONE ACETATE [Suspect]
     Active Substance: CHLORMADINONE ACETATE
     Dosage: PER DAY 21 DAYS OFF 7 DAYS RP 6 MONTHS
     Route: 065
  81. CHLORMADINONE ACETATE [Suspect]
     Active Substance: CHLORMADINONE ACETATE
     Dosage: UNK
  82. CHLORMADINONE ACETATE [Suspect]
     Active Substance: CHLORMADINONE ACETATE
     Dosage: UNK
  83. CHLORMADINONE ACETATE [Suspect]
     Active Substance: CHLORMADINONE ACETATE
     Indication: Ovarian cyst
     Dosage: 1 DF , QD FOR 21
     Route: 065
     Dates: start: 20190806
  84. CHLORMADINONE ACETATE [Suspect]
     Active Substance: CHLORMADINONE ACETATE
     Indication: Menstruation irregular
     Dosage: 1 DF , QD FOR 21
     Route: 065
     Dates: start: 20190715
  85. CHLORMADINONE ACETATE [Suspect]
     Active Substance: CHLORMADINONE ACETATE
     Indication: Ovarian cyst
     Dosage: 1 DF , QD FOR 21
     Route: 065
     Dates: start: 20190117
  86. CHLORMADINONE ACETATE [Suspect]
     Active Substance: CHLORMADINONE ACETATE
     Indication: Menstruation irregular
     Dosage: 1 DF , QD FOR 21 DAYS/ONE TABLET PER DAY DURING 21 DAYS AND 7 DAYS OFF BY MONTHS
     Route: 065
     Dates: start: 20100317, end: 20100621
  87. CHLORMADINONE ACETATE [Suspect]
     Active Substance: CHLORMADINONE ACETATE
     Dosage: ONE TABLET PER DAY DURING 21 DAYS AND 7 DAYS OFF BY MONTHS
     Route: 065
  88. CHLORMADINONE ACETATE [Suspect]
     Active Substance: CHLORMADINONE ACETATE
     Dosage: 5 MG
     Route: 065
  89. LYRICA [Suspect]
     Active Substance: PREGABALIN
     Dosage: 1 DF, BID
     Route: 061
  90. LYRICA [Suspect]
     Active Substance: PREGABALIN
     Dosage: 1 DF, BID
     Route: 061
  91. LYRICA [Suspect]
     Active Substance: PREGABALIN
     Dosage: 1 DF, BID
     Route: 061
  92. MIRTAZAPINE [Suspect]
     Active Substance: MIRTAZAPINE
     Dosage: ARROW GENERIQUES 15 MG FI/30, (2 TABLETS IN THE EVENING FOR 3 MONTHS)
     Route: 061
  93. MIRTAZAPINE [Suspect]
     Active Substance: MIRTAZAPINE
     Dosage: ARROW GENERIQUES 15 MG FI/30, (2 TABLETS IN THE EVENING FOR 3 MONTHS)
     Route: 061
  94. MIRTAZAPINE [Suspect]
     Active Substance: MIRTAZAPINE
     Dosage: ARROW GENERIQUES 15 MG FI/30, (2 TABLETS IN THE EVENING FOR 3 MONTHS)
     Route: 061
  95. TRAMADOL HYDROCHLORIDE [Suspect]
     Active Substance: TRAMADOL HYDROCHLORIDE
     Indication: Complex regional pain syndrome
     Dosage: 1 DF, QD
     Route: 061
  96. TRAMADOL HYDROCHLORIDE [Suspect]
     Active Substance: TRAMADOL HYDROCHLORIDE
     Indication: Product used for unknown indication
     Dosage: 150 MG, QD (150 MG CAPSULE LP ONCE-DAILY 5) TAKE 1 CAPSULE IN THE EVENING FOR 3 MONTHS)
     Route: 061
  97. TRAMADOL HYDROCHLORIDE [Suspect]
     Active Substance: TRAMADOL HYDROCHLORIDE
     Dosage: 150 MG, QD (150 MG CAPSULE LP ONCE-DAILY 5) TAKE 1 CAPSULE IN THE EVENING FOR 3 MONTHS)
     Route: 061
  98. TRAMADOL HYDROCHLORIDE [Suspect]
     Active Substance: TRAMADOL HYDROCHLORIDE
     Dosage: 150 MG, QD (150 MG CAPSULE LP ONCE-DAILY 5) TAKE 1 CAPSULE IN THE EVENING FOR 3 MONTHS)
     Route: 061
  99. TRAMADOL HYDROCHLORIDE [Suspect]
     Active Substance: TRAMADOL HYDROCHLORIDE
     Dosage: 1 DF, QD
     Route: 061
  100. PREGABALIN [Suspect]
     Active Substance: PREGABALIN
     Dosage: 1 DF, BID
  101. PREGABALIN [Suspect]
     Active Substance: PREGABALIN
     Dosage: 1 DF, BID
  102. PREGABALIN [Suspect]
     Active Substance: PREGABALIN
     Dosage: 1 DF, BID
     Route: 061
  103. TIAPRIDE HYDROCHLORIDE [Suspect]
     Active Substance: TIAPRIDE HYDROCHLORIDE
     Indication: Product used for unknown indication
     Dosage: 1 DF, QD/ONCE IN THE EVENING
     Route: 061
  104. TIAPRIDE HYDROCHLORIDE [Suspect]
     Active Substance: TIAPRIDE HYDROCHLORIDE
     Dosage: 100 MG (100 SCORED TABLET PLQ/20) 1 TABLET THE EVENING FOR 3 MONTHS
     Route: 061
  105. TIAPRIDE HYDROCHLORIDE [Suspect]
     Active Substance: TIAPRIDE HYDROCHLORIDE
     Dosage: 100 MG (100 SCORED TABLET PLQ/20) 1 TABLET THE EVENING FOR 3 MONTHS
     Route: 061
  106. TIAPRIDE HYDROCHLORIDE [Suspect]
     Active Substance: TIAPRIDE HYDROCHLORIDE
     Dosage: 150 MG, QD (150 MG CAPSULE LP ONCE-DAILY 5) TAKE 1 CAPSULE IN THE EVENING FOR 3 MONTHS)
     Route: 061
  107. NOMEGESTROL ACETATE [Suspect]
     Active Substance: NOMEGESTROL ACETATE
     Indication: Product used for unknown indication
     Dosage: UNK, QD (CONTINUOUSLY)
     Route: 065
  108. NOMEGESTROL ACETATE [Suspect]
     Active Substance: NOMEGESTROL ACETATE
     Dosage: UNK LUTENYL5 1 CAPPER DAY CONTINUOUSLY
     Route: 065
  109. NOMEGESTROL ACETATE [Suspect]
     Active Substance: NOMEGESTROL ACETATE
     Dosage: UNK, QD(CONTINUOUSLY)
     Route: 065
  110. NOMEGESTROL ACETATE [Suspect]
     Active Substance: NOMEGESTROL ACETATE
     Dosage: UNK LUTENYL5 1 CAPPER DAY CONTINUOUSLY
     Route: 065
  111. NOMEGESTROL ACETATE [Suspect]
     Active Substance: NOMEGESTROL ACETATE
     Dosage: UNK, QD(CONTINUOUSLY)
     Route: 065
  112. NOMEGESTROL ACETATE [Suspect]
     Active Substance: NOMEGESTROL ACETATE
     Dosage: LUTENYL5 1 CAPPER DAY CONTINUOUSLY
     Route: 065
  113. NOMEGESTROL ACETATE [Suspect]
     Active Substance: NOMEGESTROL ACETATE
     Dosage: 5 MG
     Route: 065
  114. TIAPRIDE HYDROCHLORIDE [Suspect]
     Active Substance: TIAPRIDE HYDROCHLORIDE
     Indication: Product used for unknown indication
     Dosage: 100 MILLIGRAM
  115. TIAPRIDE HYDROCHLORIDE [Suspect]
     Active Substance: TIAPRIDE HYDROCHLORIDE
     Dosage: 100 MG
     Route: 065
  116. TIAPRIDE HYDROCHLORIDE [Suspect]
     Active Substance: TIAPRIDE HYDROCHLORIDE
     Dosage: 100 MG
     Route: 065
  117. ACETAMINOPHEN [Suspect]
     Active Substance: ACETAMINOPHEN
     Indication: Product used for unknown indication
     Dosage: 4 G, QD, 1 G TLB/8 (4 TABLETS A DAY FOR ONE MONTH, IF NECESSARY)
     Route: 061
  118. ACETAMINOPHEN [Suspect]
     Active Substance: ACETAMINOPHEN
     Dosage: 4 G, QD, 1 G TLB/8 (4 TABLETS A DAY FOR ONE MONTH, IF  NECESSARY)
     Route: 061
  119. ACETAMINOPHEN [Suspect]
     Active Substance: ACETAMINOPHEN
     Dosage: 4 G, QD, 1 G TLB/8 (4 TABLETS A DAY FOR ONE MONTH, IF  NECESSARY)
     Route: 061
  120. HYDROCORTISONE BUTYRATE [Suspect]
     Active Substance: HYDROCORTISONE BUTYRATE
     Indication: Product used for unknown indication
     Dosage: 0.1 %, GREME (LOCOID CF THICK T/30G)
     Route: 065
  121. HYDROCORTISONE BUTYRATE [Suspect]
     Active Substance: HYDROCORTISONE BUTYRATE
     Dosage: 0.1 %, GREME (LOCOID CF THICK T/30G)
     Route: 065
  122. HYDROCORTISONE BUTYRATE [Suspect]
     Active Substance: HYDROCORTISONE BUTYRATE
     Dosage: 0.1 %, GREME (LOCOID CF THICK T/30G)
     Route: 065
  123. TIAPRIDE HYDROCHLORIDE [Suspect]
     Active Substance: TIAPRIDE HYDROCHLORIDE
     Indication: Product used for unknown indication
     Dosage: 100 MILLIGRAM
     Route: 065
  124. TIAPRIDE HYDROCHLORIDE [Suspect]
     Active Substance: TIAPRIDE HYDROCHLORIDE
     Dosage: 100 MG
     Route: 065
  125. TIAPRIDE HYDROCHLORIDE [Suspect]
     Active Substance: TIAPRIDE HYDROCHLORIDE
     Dosage: 100 MG
     Route: 065
  126. TRAMADOL HYDROCHLORIDE [Suspect]
     Active Substance: TRAMADOL HYDROCHLORIDE
     Indication: Product used for unknown indication
     Dosage: 150 MG, QD (150 MG CAPSULE LP ONCE-DAILY 5) TAKE 1 CAPSULE IN THE EVENING FOR 3 MONTHS)
  127. TRAMADOL HYDROCHLORIDE [Suspect]
     Active Substance: TRAMADOL HYDROCHLORIDE
     Dosage: 150 MG, QD (150 MG CAPSULE LP ONCE-DAILY 5) TAKE 1 CAPSULE IN THE EVENING FOR 3 MONTHS)
     Route: 061
  128. TRAMADOL HYDROCHLORIDE [Suspect]
     Active Substance: TRAMADOL HYDROCHLORIDE
     Dosage: 150 MG, QD (150 MG CAPSULE LP ONCE-DAILY 5) TAKE 1 CAPSULE IN THE EVENING FOR 3 MONTHS)
     Route: 061
  129. PROGESTERONE [Suspect]
     Active Substance: PROGESTERONE
     Indication: Product used for unknown indication
     Dosage: 1 DOSE OF GEL PER DAY ON THE BREASTS RP 6 MONTHS
     Route: 065
  130. PROGESTERONE [Suspect]
     Active Substance: PROGESTERONE
     Dosage: 1 DOSE OF GEL PER DAY ON THE BREASTS RP  6 MONTHS
     Route: 065
  131. PROGESTERONE [Suspect]
     Active Substance: PROGESTERONE
     Dosage: 1 DOSE OF GEL PER DAY ON THE BREASTS RP  6 MONTHS
     Route: 065
  132. NOMEGESTROL ACETATE [Suspect]
     Active Substance: NOMEGESTROL ACETATE
     Indication: Product used for unknown indication
     Dosage: 5 MG
     Route: 065
  133. NOMEGESTROL ACETATE [Suspect]
     Active Substance: NOMEGESTROL ACETATE
     Dosage: 5 MG
     Route: 065
  134. NOMEGESTROL ACETATE [Suspect]
     Active Substance: NOMEGESTROL ACETATE
     Dosage: 5 MG
     Route: 065
  135. NOMEGESTROL ACETATE [Suspect]
     Active Substance: NOMEGESTROL ACETATE
     Dosage: 5 MG
     Route: 065
  136. NOMEGESTROL ACETATE [Suspect]
     Active Substance: NOMEGESTROL ACETATE
     Dosage: 5 MG
     Route: 065
  137. NOMEGESTROL ACETATE [Suspect]
     Active Substance: NOMEGESTROL ACETATE
     Dosage: 5 MG
     Route: 065
  138. NOMEGESTROL ACETATE [Suspect]
     Active Substance: NOMEGESTROL ACETATE
     Dosage: 5 MG
     Route: 065
  139. NOMEGESTROL ACETATE [Suspect]
     Active Substance: NOMEGESTROL ACETATE
     Dosage: 5 MG
     Route: 065
  140. NOMEGESTROL ACETATE [Suspect]
     Active Substance: NOMEGESTROL ACETATE
     Dosage: UNK, QD( FOR 21 DAYS, STOP FOR 7 DAYS, THEN RESUME.)
     Route: 065
  141. NOMEGESTROL ACETATE [Suspect]
     Active Substance: NOMEGESTROL ACETATE
     Dosage: 5 MG, QD 1 TABLET IN THE EVENING FOR 3 MONTHS
     Route: 065
  142. NOMEGESTROL ACETATE [Suspect]
     Active Substance: NOMEGESTROL ACETATE
     Dosage: UNK LUTENYL5 1 CAPPER DAY CONTINUOUSLY
  143. NOMEGESTROL ACETATE [Suspect]
     Active Substance: NOMEGESTROL ACETATE
     Dosage: UNK, QD( FOR 21 DAYS, STOP FOR 7 DAYS,  THEN RESUME.)
     Route: 065
  144. NOMEGESTROL ACETATE [Suspect]
     Active Substance: NOMEGESTROL ACETATE
     Dosage: 5 MG, QD 1 TABLET IN THE EVENING FOR 3  MONTHS
     Route: 061
  145. NOMEGESTROL ACETATE [Suspect]
     Active Substance: NOMEGESTROL ACETATE
     Dosage: UNK LUTENYL5 1 CAPPER DAY  CONTINUOUSLY
     Route: 065
  146. NOMEGESTROL ACETATE [Suspect]
     Active Substance: NOMEGESTROL ACETATE
     Dosage: UNK, QD( FOR 21 DAYS, STOP FOR 7 DAYS,  THEN RESUME.)
     Route: 065
  147. NOMEGESTROL ACETATE [Suspect]
     Active Substance: NOMEGESTROL ACETATE
     Dosage: 5 MG, QD 1 TABLET IN THE EVENING FOR 3  MONTHS
     Route: 061
  148. NOMEGESTROL ACETATE [Suspect]
     Active Substance: NOMEGESTROL ACETATE
     Dosage: UNK LUTENYL5 1 CAPPER DAY  CONTINUOUSLY
     Route: 065
  149. PREGABALIN [Suspect]
     Active Substance: PREGABALIN
     Indication: Product used for unknown indication
     Dosage: UNK, BID (100 MG CAPSULE TBLT/84 (TAKE 1 CAPSULE MORNING AND EVENING, FOR 3 MONTHS)
     Route: 061
  150. PREGABALIN [Suspect]
     Active Substance: PREGABALIN
     Indication: Product used for unknown indication
     Dosage: 100 MG
     Route: 061
  151. PREGABALIN [Suspect]
     Active Substance: PREGABALIN
     Dosage: UNK, BID (100 MG CAPSULE TBLT/84 (TAKE 1 CAPSULE MORNING AND EVENING, FOR 3 MONTHS)
     Route: 061
  152. PREGABALIN [Suspect]
     Active Substance: PREGABALIN
     Dosage: PREGABAL MYL 100 MG GEL PLQ/84
     Route: 061
  153. CHLORMADINONE [Suspect]
     Active Substance: CHLORMADINONE
     Indication: Product used for unknown indication
     Dosage: 10 MG
     Route: 065
  154. CHLORMADINONE [Suspect]
     Active Substance: CHLORMADINONE
     Indication: Ovarian cyst
     Dosage: MERCK
     Route: 065
  155. CHLORMADINONE [Suspect]
     Active Substance: CHLORMADINONE
     Dosage: MERCK
     Route: 065
  156. CHLORMADINONE [Suspect]
     Active Substance: CHLORMADINONE
     Indication: Product used for unknown indication
     Dosage: 10 MG
     Route: 065
  157. CHLORMADINONE [Suspect]
     Active Substance: CHLORMADINONE
     Indication: Product used for unknown indication
     Dosage: UNK
     Route: 065
  158. NOMEGESTROL [Suspect]
     Active Substance: NOMEGESTROL
     Indication: Product used for unknown indication
     Dosage: 5 MILLIGRAM
     Route: 065
  159. NOMEGESTROL [Suspect]
     Active Substance: NOMEGESTROL
     Dosage: UNK
     Route: 065
  160. NOMEGESTROL [Suspect]
     Active Substance: NOMEGESTROL
     Dosage: UNK
     Route: 065
  161. NOMEGESTROL [Suspect]
     Active Substance: NOMEGESTROL
     Dosage: UNK
     Route: 065
  162. NOMEGESTROL [Suspect]
     Active Substance: NOMEGESTROL
     Dosage: UNK
     Route: 065
  163. NOMEGESTROL [Suspect]
     Active Substance: NOMEGESTROL
     Dosage: UNK
     Route: 065
  164. NOMEGESTROL [Suspect]
     Active Substance: NOMEGESTROL
     Dosage: UNK
     Route: 065
  165. NOMEGESTROL [Suspect]
     Active Substance: NOMEGESTROL
     Dosage: UNK
     Route: 065
  166. NOMEGESTROL [Suspect]
     Active Substance: NOMEGESTROL
     Dosage: UNK
     Route: 065
  167. NOMEGESTROL [Suspect]
     Active Substance: NOMEGESTROL
     Dosage: UNK
     Route: 065
  168. NOMEGESTROL [Suspect]
     Active Substance: NOMEGESTROL
     Dosage: UNK
     Route: 065
  169. NOMEGESTROL [Suspect]
     Active Substance: NOMEGESTROL
     Dosage: UNK
     Route: 065
  170. NOMEGESTROL [Suspect]
     Active Substance: NOMEGESTROL
     Dosage: UNK
     Route: 065
  171. NOMEGESTROL [Suspect]
     Active Substance: NOMEGESTROL
     Dosage: UNK
     Route: 065
  172. NOMEGESTROL [Suspect]
     Active Substance: NOMEGESTROL
     Dosage: UNK
     Route: 065
  173. NOMEGESTROL [Suspect]
     Active Substance: NOMEGESTROL
     Dosage: UNK
     Route: 065
  174. NOMEGESTROL [Suspect]
     Active Substance: NOMEGESTROL
     Dosage: UNK
     Route: 065
  175. NOMEGESTROL [Suspect]
     Active Substance: NOMEGESTROL
     Dosage: UNK
     Route: 065
  176. NOMEGESTROL [Suspect]
     Active Substance: NOMEGESTROL
     Dosage: UNK
     Route: 065
  177. NOMEGESTROL [Suspect]
     Active Substance: NOMEGESTROL
     Dosage: UNK
     Route: 065
  178. NOMEGESTROL [Suspect]
     Active Substance: NOMEGESTROL
     Dosage: UNK
     Route: 065
  179. NOMEGESTROL [Suspect]
     Active Substance: NOMEGESTROL
     Dosage: UNK
     Route: 065
  180. NOMEGESTROL [Suspect]
     Active Substance: NOMEGESTROL
     Dosage: UNK
     Route: 065
  181. NOMEGESTROL [Suspect]
     Active Substance: NOMEGESTROL
     Dosage: UNK
     Route: 065
  182. NOMEGESTROL [Suspect]
     Active Substance: NOMEGESTROL
     Dosage: UNK
     Route: 065
  183. NOMEGESTROL [Suspect]
     Active Substance: NOMEGESTROL
     Dosage: UNK
     Route: 065
  184. NOMEGESTROL [Suspect]
     Active Substance: NOMEGESTROL
     Dosage: UNK
     Route: 065
  185. NOMEGESTROL [Suspect]
     Active Substance: NOMEGESTROL
     Dosage: UNK
     Route: 065
  186. NOMEGESTROL [Suspect]
     Active Substance: NOMEGESTROL
     Dosage: UNK
     Route: 065
  187. NOMEGESTROL [Suspect]
     Active Substance: NOMEGESTROL
     Dosage: UNK
     Route: 065
  188. NOMEGESTROL [Suspect]
     Active Substance: NOMEGESTROL
     Dosage: UNK
     Route: 065
  189. NOMEGESTROL [Suspect]
     Active Substance: NOMEGESTROL
     Dosage: UNK
     Route: 065
  190. NOMEGESTROL [Suspect]
     Active Substance: NOMEGESTROL
     Dosage: UNK
     Route: 065
  191. NOMEGESTROL [Suspect]
     Active Substance: NOMEGESTROL
     Dosage: UNK
     Route: 065
  192. NOMEGESTROL [Suspect]
     Active Substance: NOMEGESTROL
     Dosage: UNK
     Route: 065
  193. NOMEGESTROL [Suspect]
     Active Substance: NOMEGESTROL
     Dosage: UNK
     Route: 065
  194. NOMEGESTROL [Suspect]
     Active Substance: NOMEGESTROL
     Dosage: UNK
     Route: 065
  195. NOMEGESTROL [Suspect]
     Active Substance: NOMEGESTROL
     Dosage: UNK
     Route: 065
  196. NOMEGESTROL [Suspect]
     Active Substance: NOMEGESTROL
     Dosage: UNK
     Route: 065
  197. NOMEGESTROL [Suspect]
     Active Substance: NOMEGESTROL
     Dosage: UNK
     Route: 065
  198. NOMEGESTROL [Suspect]
     Active Substance: NOMEGESTROL
     Dosage: UNK
     Route: 065
  199. NOMEGESTROL [Suspect]
     Active Substance: NOMEGESTROL
     Dosage: UNK
     Route: 065
  200. NOMEGESTROL [Suspect]
     Active Substance: NOMEGESTROL
     Dosage: UNK
     Route: 065
  201. NOMEGESTROL [Suspect]
     Active Substance: NOMEGESTROL
     Dosage: UNK
     Route: 065
  202. NOMEGESTROL [Suspect]
     Active Substance: NOMEGESTROL
     Dosage: UNK
     Route: 065
  203. NOMEGESTROL [Suspect]
     Active Substance: NOMEGESTROL
     Dosage: UNK
     Route: 065
  204. NOMEGESTROL [Suspect]
     Active Substance: NOMEGESTROL
     Dosage: UNK
     Route: 065
  205. NOMEGESTROL [Suspect]
     Active Substance: NOMEGESTROL
     Dosage: UNK
     Route: 065
  206. NOMEGESTROL [Suspect]
     Active Substance: NOMEGESTROL
     Dosage: UNK
     Route: 065
  207. NOMEGESTROL [Suspect]
     Active Substance: NOMEGESTROL
     Dosage: 5 MG
     Route: 065
  208. NOMEGESTROL [Suspect]
     Active Substance: NOMEGESTROL
     Indication: Product used for unknown indication
     Dosage: MERCK,ONE TABLET PER DAY DURING 21 DAYS AND 7 DAYS OFF BY MONTHS
     Route: 065
  209. NOMEGESTROL [Suspect]
     Active Substance: NOMEGESTROL
     Indication: Ovarian cyst
     Dosage: MERCK
     Route: 065
  210. NOMEGESTROL [Suspect]
     Active Substance: NOMEGESTROL
     Dosage: UNK
     Route: 065
  211. NOMEGESTROL [Suspect]
     Active Substance: NOMEGESTROL
     Dosage: UNK
     Route: 065
  212. NOMEGESTROL [Suspect]
     Active Substance: NOMEGESTROL
     Dosage: UNK
     Route: 065
  213. NOMEGESTROL [Suspect]
     Active Substance: NOMEGESTROL
     Dosage: UNK
     Route: 065
  214. NOMEGESTROL [Suspect]
     Active Substance: NOMEGESTROL
     Dosage: UNK
     Route: 065
  215. NOMEGESTROL [Suspect]
     Active Substance: NOMEGESTROL
     Dosage: UNK
     Route: 065
  216. NOMEGESTROL [Suspect]
     Active Substance: NOMEGESTROL
     Dosage: UNK
     Route: 065
  217. NOMEGESTROL [Suspect]
     Active Substance: NOMEGESTROL
     Dosage: UNK
     Route: 065
  218. NOMEGESTROL [Suspect]
     Active Substance: NOMEGESTROL
     Dosage: UNK
     Route: 065
  219. NOMEGESTROL [Suspect]
     Active Substance: NOMEGESTROL
     Dosage: UNK
     Route: 065
  220. NOMEGESTROL [Suspect]
     Active Substance: NOMEGESTROL
     Dosage: UNK
     Route: 065
  221. NOMEGESTROL [Suspect]
     Active Substance: NOMEGESTROL
     Dosage: UNK
     Route: 065
  222. NOMEGESTROL [Suspect]
     Active Substance: NOMEGESTROL
     Dosage: UNK
     Route: 065
  223. NOMEGESTROL [Suspect]
     Active Substance: NOMEGESTROL
     Dosage: UNK
     Route: 065
  224. NOMEGESTROL [Suspect]
     Active Substance: NOMEGESTROL
     Dosage: UNK
     Route: 065
  225. NOMEGESTROL [Suspect]
     Active Substance: NOMEGESTROL
     Dosage: UNK
     Route: 065
  226. NOMEGESTROL [Suspect]
     Active Substance: NOMEGESTROL
     Dosage: UNK
     Route: 065
  227. NOMEGESTROL [Suspect]
     Active Substance: NOMEGESTROL
     Dosage: UNK
     Route: 065
  228. NOMEGESTROL [Suspect]
     Active Substance: NOMEGESTROL
     Dosage: UNK
     Route: 065
  229. NOMEGESTROL [Suspect]
     Active Substance: NOMEGESTROL
     Dosage: UNK
     Route: 065
  230. NOMEGESTROL [Suspect]
     Active Substance: NOMEGESTROL
     Dosage: UNK
     Route: 065
  231. NOMEGESTROL [Suspect]
     Active Substance: NOMEGESTROL
     Dosage: UNK
     Route: 065
  232. NOMEGESTROL [Suspect]
     Active Substance: NOMEGESTROL
     Dosage: UNK
     Route: 065
  233. NOMEGESTROL [Suspect]
     Active Substance: NOMEGESTROL
     Dosage: UNK
     Route: 065
  234. NOMEGESTROL [Suspect]
     Active Substance: NOMEGESTROL
     Dosage: UNK
     Route: 065
  235. NOMEGESTROL [Suspect]
     Active Substance: NOMEGESTROL
     Dosage: UNK
     Route: 065
  236. NOMEGESTROL [Suspect]
     Active Substance: NOMEGESTROL
     Dosage: UNK
     Route: 065
  237. NOMEGESTROL [Suspect]
     Active Substance: NOMEGESTROL
     Dosage: UNK
     Route: 065
  238. NOMEGESTROL [Suspect]
     Active Substance: NOMEGESTROL
     Dosage: UNK
     Route: 065
  239. NOMEGESTROL [Suspect]
     Active Substance: NOMEGESTROL
     Dosage: UNK
     Route: 065
  240. NOMEGESTROL [Suspect]
     Active Substance: NOMEGESTROL
     Dosage: UNK
     Route: 065
  241. NOMEGESTROL [Suspect]
     Active Substance: NOMEGESTROL
     Dosage: UNK
     Route: 065
  242. NOMEGESTROL [Suspect]
     Active Substance: NOMEGESTROL
     Dosage: UNK
     Route: 065
  243. NOMEGESTROL [Suspect]
     Active Substance: NOMEGESTROL
     Dosage: UNK
     Route: 065
  244. NOMEGESTROL [Suspect]
     Active Substance: NOMEGESTROL
     Dosage: UNK
     Route: 065
  245. NOMEGESTROL [Suspect]
     Active Substance: NOMEGESTROL
     Dosage: UNK
     Route: 065
  246. NOMEGESTROL [Suspect]
     Active Substance: NOMEGESTROL
     Dosage: UNK
     Route: 065
  247. NOMEGESTROL [Suspect]
     Active Substance: NOMEGESTROL
     Dosage: UNK
     Route: 065
  248. NOMEGESTROL [Suspect]
     Active Substance: NOMEGESTROL
     Dosage: UNK
     Route: 065
  249. NOMEGESTROL [Suspect]
     Active Substance: NOMEGESTROL
     Dosage: UNK
     Route: 065
  250. NOMEGESTROL [Suspect]
     Active Substance: NOMEGESTROL
     Dosage: UNK
     Route: 065
  251. NOMEGESTROL [Suspect]
     Active Substance: NOMEGESTROL
     Dosage: UNK
     Route: 065
  252. NOMEGESTROL [Suspect]
     Active Substance: NOMEGESTROL
     Dosage: UNK
     Route: 065
  253. NOMEGESTROL [Suspect]
     Active Substance: NOMEGESTROL
     Dosage: UNK
     Route: 065
  254. NOMEGESTROL [Suspect]
     Active Substance: NOMEGESTROL
     Dosage: UNK
     Route: 065
  255. NOMEGESTROL [Suspect]
     Active Substance: NOMEGESTROL
     Dosage: UNK
     Route: 065
  256. NOMEGESTROL [Suspect]
     Active Substance: NOMEGESTROL
     Dosage: UNK
     Route: 065
  257. NOMEGESTROL [Suspect]
     Active Substance: NOMEGESTROL
     Dosage: UNK
     Route: 065
  258. NOMEGESTROL [Suspect]
     Active Substance: NOMEGESTROL
     Dosage: UNK
     Route: 065
  259. NOMEGESTROL [Suspect]
     Active Substance: NOMEGESTROL
     Dosage: RATIOPHARM
     Route: 065
  260. NOMEGESTROL [Suspect]
     Active Substance: NOMEGESTROL
     Indication: Product used for unknown indication
     Dosage: 5 MG (RATIOPHARM)
  261. NOMEGESTROL [Suspect]
     Active Substance: NOMEGESTROL
     Dosage: 5 MILLIGRAM
  262. NOMEGESTROL [Suspect]
     Active Substance: NOMEGESTROL
     Dosage: 5 MILLIGRAM
  263. NOMEGESTROL [Suspect]
     Active Substance: NOMEGESTROL
     Dosage: MERCK
     Route: 065
  264. NOMEGESTROL [Suspect]
     Active Substance: NOMEGESTROL
     Dosage: UNK
     Route: 065
  265. NOMEGESTROL [Suspect]
     Active Substance: NOMEGESTROL
     Dosage: UNK
     Route: 065
  266. NOMEGESTROL [Suspect]
     Active Substance: NOMEGESTROL
     Dosage: UNK
     Route: 065
  267. NOMEGESTROL [Suspect]
     Active Substance: NOMEGESTROL
     Dosage: UNK
     Route: 065
  268. NOMEGESTROL [Suspect]
     Active Substance: NOMEGESTROL
     Dosage: UNK
     Route: 065
  269. NOMEGESTROL [Suspect]
     Active Substance: NOMEGESTROL
     Dosage: UNK
     Route: 065
  270. NOMEGESTROL [Suspect]
     Active Substance: NOMEGESTROL
     Dosage: UNK
     Route: 065
  271. NOMEGESTROL [Suspect]
     Active Substance: NOMEGESTROL
     Dosage: UNK
     Route: 065
  272. NOMEGESTROL [Suspect]
     Active Substance: NOMEGESTROL
     Dosage: UNK
     Route: 065
  273. NOMEGESTROL [Suspect]
     Active Substance: NOMEGESTROL
     Dosage: UNK
     Route: 065
  274. NOMEGESTROL [Suspect]
     Active Substance: NOMEGESTROL
     Dosage: UNK
     Route: 065
  275. NOMEGESTROL [Suspect]
     Active Substance: NOMEGESTROL
     Dosage: UNK
     Route: 065
  276. NOMEGESTROL [Suspect]
     Active Substance: NOMEGESTROL
     Dosage: UNK
     Route: 065
  277. NOMEGESTROL [Suspect]
     Active Substance: NOMEGESTROL
     Dosage: UNK
     Route: 065
  278. NOMEGESTROL [Suspect]
     Active Substance: NOMEGESTROL
     Dosage: UNK
     Route: 065
  279. NOMEGESTROL [Suspect]
     Active Substance: NOMEGESTROL
     Dosage: UNK
     Route: 065
  280. NOMEGESTROL [Suspect]
     Active Substance: NOMEGESTROL
     Dosage: UNK
     Route: 065
  281. NOMEGESTROL [Suspect]
     Active Substance: NOMEGESTROL
     Dosage: UNK
     Route: 065
  282. NOMEGESTROL [Suspect]
     Active Substance: NOMEGESTROL
     Dosage: UNK
     Route: 065
  283. NOMEGESTROL [Suspect]
     Active Substance: NOMEGESTROL
     Dosage: UNK
     Route: 065
  284. NOMEGESTROL [Suspect]
     Active Substance: NOMEGESTROL
     Dosage: UNK
     Route: 065
  285. NOMEGESTROL [Suspect]
     Active Substance: NOMEGESTROL
     Dosage: UNK
     Route: 065
  286. NOMEGESTROL [Suspect]
     Active Substance: NOMEGESTROL
     Dosage: UNK
     Route: 065
  287. NOMEGESTROL [Suspect]
     Active Substance: NOMEGESTROL
     Dosage: UNK
     Route: 065
  288. NOMEGESTROL [Suspect]
     Active Substance: NOMEGESTROL
     Dosage: UNK
     Route: 065
  289. NOMEGESTROL [Suspect]
     Active Substance: NOMEGESTROL
     Dosage: UNK
     Route: 065
  290. NOMEGESTROL [Suspect]
     Active Substance: NOMEGESTROL
     Dosage: UNK
     Route: 065
  291. NOMEGESTROL [Suspect]
     Active Substance: NOMEGESTROL
     Dosage: UNK
     Route: 065
  292. NOMEGESTROL [Suspect]
     Active Substance: NOMEGESTROL
     Dosage: UNK
     Route: 065
  293. NOMEGESTROL [Suspect]
     Active Substance: NOMEGESTROL
     Dosage: UNK
     Route: 065
  294. NOMEGESTROL [Suspect]
     Active Substance: NOMEGESTROL
     Dosage: UNK
     Route: 065
  295. NOMEGESTROL [Suspect]
     Active Substance: NOMEGESTROL
     Dosage: UNK
     Route: 065
  296. NOMEGESTROL [Suspect]
     Active Substance: NOMEGESTROL
     Dosage: UNK
     Route: 065
  297. NOMEGESTROL [Suspect]
     Active Substance: NOMEGESTROL
     Dosage: UNK
     Route: 065
  298. NOMEGESTROL [Suspect]
     Active Substance: NOMEGESTROL
     Dosage: UNK
     Route: 065
  299. NOMEGESTROL [Suspect]
     Active Substance: NOMEGESTROL
     Dosage: UNK
     Route: 065
  300. NOMEGESTROL [Suspect]
     Active Substance: NOMEGESTROL
     Dosage: UNK
     Route: 065
  301. NOMEGESTROL [Suspect]
     Active Substance: NOMEGESTROL
     Dosage: UNK
     Route: 065
  302. NOMEGESTROL [Suspect]
     Active Substance: NOMEGESTROL
     Dosage: UNK
     Route: 065
  303. NOMEGESTROL [Suspect]
     Active Substance: NOMEGESTROL
     Dosage: UNK
     Route: 065
  304. NOMEGESTROL [Suspect]
     Active Substance: NOMEGESTROL
     Dosage: UNK
     Route: 065
  305. NOMEGESTROL [Suspect]
     Active Substance: NOMEGESTROL
     Dosage: UNK
     Route: 065
  306. NOMEGESTROL [Suspect]
     Active Substance: NOMEGESTROL
     Dosage: UNK
     Route: 065
  307. NOMEGESTROL [Suspect]
     Active Substance: NOMEGESTROL
     Dosage: UNK
     Route: 065
  308. NOMEGESTROL [Suspect]
     Active Substance: NOMEGESTROL
     Dosage: UNK
     Route: 065
  309. NOMEGESTROL [Suspect]
     Active Substance: NOMEGESTROL
     Dosage: UNK
     Route: 065
  310. NOMEGESTROL [Suspect]
     Active Substance: NOMEGESTROL
     Dosage: UNK
     Route: 065
  311. NOMEGESTROL [Suspect]
     Active Substance: NOMEGESTROL
     Dosage: UNK
     Route: 065
  312. NOMEGESTROL [Suspect]
     Active Substance: NOMEGESTROL
     Dosage: UNK
     Route: 065
  313. BROMAZEPAM [Suspect]
     Active Substance: BROMAZEPAM
     Indication: Product used for unknown indication
     Dosage: 0.25 DF, TID
  314. DARIDOREXANT [Concomitant]
     Active Substance: DARIDOREXANT
     Dosage: 1 TABLET AT BEDTIME
  315. BROMAZEPAM [Concomitant]
     Active Substance: BROMAZEPAM
  316. MIRTAZAPINE [Suspect]
     Active Substance: MIRTAZAPINE
     Dosage: ARROW GENERIQUES 15 MG FI/30, (2 TABLETS IN THE EVENING FOR 3 MONTHS)
     Route: 061
  317. CHOLECALCIFEROL [Concomitant]
     Active Substance: CHOLECALCIFEROL
     Dosage: PRESCRIBED AT A RATE OF 1 VIAL/MONTH

REACTIONS (33)
  - Meningioma [Recovered/Resolved with Sequelae]
  - Meningioma [Recovered/Resolved with Sequelae]
  - Hospitalisation [Unknown]
  - Muscular weakness [Not Recovered/Not Resolved]
  - Pain in extremity [Not Recovered/Not Resolved]
  - Dizziness [Not Recovered/Not Resolved]
  - Epistaxis [Not Recovered/Not Resolved]
  - Headache [Not Recovered/Not Resolved]
  - Asthenia [Not Recovered/Not Resolved]
  - Mental disability [Unknown]
  - Neuralgia [Not Recovered/Not Resolved]
  - Brain compression [Unknown]
  - Eating disorder [Unknown]
  - Discomfort [Unknown]
  - Sleep disorder [Unknown]
  - Amnesia [Unknown]
  - Hypoaesthesia [Unknown]
  - Fibromyalgia [Unknown]
  - Limb discomfort [Unknown]
  - Pain [Unknown]
  - Anxiety disorder [Unknown]
  - Decreased appetite [Unknown]
  - Memory impairment [Unknown]
  - Pain [Unknown]
  - Endometrial thickening [Unknown]
  - Electric shock sensation [Unknown]
  - Asthenia [Not Recovered/Not Resolved]
  - Uterine polyp [Unknown]
  - Gait disturbance [Unknown]
  - Sensory loss [Unknown]
  - Insomnia [Unknown]
  - Scar [Not Recovered/Not Resolved]
  - Hypoaesthesia [Unknown]

NARRATIVE: CASE EVENT DATE: 20211021
